FAERS Safety Report 17728655 (Version 1)
Quarter: 2020Q2

REPORT INFORMATION
  Report Type: Report from Study
  Country: US (occurrence: US)
  Receive Date: 20200430
  Receipt Date: 20200430
  Transmission Date: 20200714
  Serious: No
  Sender: FDA-Public Use
  Company Number: NVSC2020US116633

PATIENT
  Sex: Female

DRUGS (2)
  1. ENTRESTO [Suspect]
     Active Substance: SACUBITRIL\VALSARTAN
     Indication: CARDIAC FAILURE CONGESTIVE
     Route: 065
     Dates: start: 202002
  2. LISINOPRIL. [Suspect]
     Active Substance: LISINOPRIL
     Indication: CARDIAC FAILURE CONGESTIVE
     Dosage: UNK
     Route: 065
     Dates: end: 202003

REACTIONS (11)
  - Hypersomnia [Unknown]
  - Renal disorder [Unknown]
  - Cough [Unknown]
  - Stress [Unknown]
  - Product dose omission [Unknown]
  - Oedema peripheral [Unknown]
  - Palpitations [Unknown]
  - Dysuria [Unknown]
  - Dyspnoea [Unknown]
  - Panic attack [Unknown]
  - Weight decreased [Unknown]
